FAERS Safety Report 20836040 (Version 3)
Quarter: 2022Q4

REPORT INFORMATION
  Report Type: Spontaneous
  Country: US (occurrence: US)
  Receive Date: 20220516
  Receipt Date: 20221215
  Transmission Date: 20230112
  Serious: No
  Sender: FDA-Public Use
  Company Number: US-BRISTOL-MYERS SQUIBB COMPANY-2022-023026

PATIENT
  Age: 67 Year
  Sex: Female
  Weight: 93.2 kg

DRUGS (3)
  1. REVLIMID [Suspect]
     Active Substance: LENALIDOMIDE
     Indication: Plasma cell myeloma
     Dosage: FREQUENCY-1 CAPSULE BY MOUTH DAILY FOR 21 DAYS ON AND 7 OFF
     Route: 048
     Dates: start: 20210224
  2. REVLIMID [Suspect]
     Active Substance: LENALIDOMIDE
     Dosage: FREQUENCY: DAILY FOR 21 DAYS ON THEN 7 DAYS OFF.
     Route: 048
     Dates: start: 20210225
  3. REVLIMID [Suspect]
     Active Substance: LENALIDOMIDE
     Dosage: FREQUENCY: DAILY FOR 21 DAYS ON THEN 7 DAYS OFF.
     Route: 048
     Dates: start: 20220120

REACTIONS (5)
  - Paraesthesia [Unknown]
  - Back pain [Unknown]
  - Muscle spasms [Unknown]
  - COVID-19 [Unknown]
  - White blood cell count decreased [Recovered/Resolved]

NARRATIVE: CASE EVENT DATE: 20220401
